FAERS Safety Report 15754854 (Version 10)
Quarter: 2025Q2

REPORT INFORMATION
  Report Type: Spontaneous
  Country: IT (occurrence: IT)
  Receive Date: 20181224
  Receipt Date: 20250429
  Transmission Date: 20250716
  Serious: Yes (Death, Other)
  Sender: AUROBINDO
  Company Number: IT-AUROBINDO-AUR-APL-2018-061997

PATIENT
  Age: 32 Year
  Sex: Male

DRUGS (15)
  1. CITALOPRAM [Suspect]
     Active Substance: CITALOPRAM
     Indication: Product used for unknown indication
     Route: 065
  2. LORAZEPAM [Suspect]
     Active Substance: LORAZEPAM
     Indication: Product used for unknown indication
     Route: 065
  3. VENLAFAXINE [Suspect]
     Active Substance: VENLAFAXINE HYDROCHLORIDE
     Indication: Product used for unknown indication
     Route: 065
  4. NANDROLONE DECANOATE [Suspect]
     Active Substance: NANDROLONE DECANOATE
     Indication: Product used for unknown indication
     Route: 065
  5. METHADONE HYDROCHLORIDE [Suspect]
     Active Substance: METHADONE HYDROCHLORIDE
     Indication: Product used for unknown indication
     Route: 065
  6. DRONABINOL [Suspect]
     Active Substance: DRONABINOL
     Indication: Product used for unknown indication
     Route: 065
  7. TESTOSTERONE [Suspect]
     Active Substance: TESTOSTERONE
     Indication: Performance enhancing product use
     Route: 065
  8. CLOZAPINE [Suspect]
     Active Substance: CLOZAPINE
     Indication: Product used for unknown indication
     Route: 065
  9. PHENOBARBITAL [Suspect]
     Active Substance: PHENOBARBITAL
     Indication: Product used for unknown indication
     Route: 065
  10. CANNABINOL [Suspect]
     Active Substance: CANNABINOL
     Indication: Product used for unknown indication
     Route: 065
  11. STANOZOLOL [Suspect]
     Active Substance: STANOZOLOL
     Indication: Product used for unknown indication
     Route: 065
  12. OXANDROLONE [Suspect]
     Active Substance: OXANDROLONE
     Indication: Product used for unknown indication
     Route: 065
  13. CLOMIPHENE [Interacting]
     Active Substance: CLOMIPHENE
     Indication: Product used for unknown indication
     Route: 065
  14. METHENOLONE ENANTHATE [Suspect]
     Active Substance: METHENOLONE ENANTHATE
     Indication: Product used for unknown indication
     Route: 065
  15. TESTOSTERONE UNDECANOATE [Suspect]
     Active Substance: TESTOSTERONE UNDECANOATE
     Indication: Performance enhancing product use
     Route: 048

REACTIONS (9)
  - Myocardial fibrosis [Fatal]
  - Left ventricular hypertrophy [Fatal]
  - Cardiac death [Fatal]
  - Testicular atrophy [Fatal]
  - Muscle mass [Fatal]
  - Cardiotoxicity [Fatal]
  - Toxicity to various agents [Fatal]
  - Drug abuse [Fatal]
  - Prescription drug used without a prescription [Fatal]
